FAERS Safety Report 23040980 (Version 1)
Quarter: 2023Q4

REPORT INFORMATION
  Report Type: Spontaneous
  Country: US (occurrence: US)
  Receive Date: 20231006
  Receipt Date: 20231006
  Transmission Date: 20240110
  Serious: No
  Sender: FDA-Public Use
  Company Number: US-HORIZON THERAPEUTICS-HZN-2022-000452

PATIENT

DRUGS (3)
  1. KRYSTEXXA [Suspect]
     Active Substance: PEGLOTICASE
     Indication: Gout
     Dosage: INFUSION
     Route: 042
     Dates: start: 202101
  2. COLCHICINE [Concomitant]
     Active Substance: COLCHICINE
  3. INDOMETHACIN [Concomitant]
     Active Substance: INDOMETHACIN

REACTIONS (1)
  - Gout [Unknown]

NARRATIVE: CASE EVENT DATE: 20210101
